FAERS Safety Report 20863533 (Version 2)
Quarter: 2022Q3

REPORT INFORMATION
  Report Type: Report from Study
  Country: IT (occurrence: IT)
  Receive Date: 20220523
  Receipt Date: 20220726
  Transmission Date: 20221027
  Serious: Yes (Hospitalization)
  Sender: FDA-Public Use
  Company Number: None

PATIENT
  Age: 22 Year
  Sex: Female

DRUGS (9)
  1. LYRICA [Suspect]
     Active Substance: PREGABALIN
     Dosage: 250 MG, TOTAL
     Route: 048
     Dates: start: 20210924, end: 20210924
  2. GABAPENTIN [Suspect]
     Active Substance: GABAPENTIN
     Dosage: 1700 MG, TOTAL
     Route: 048
     Dates: start: 20210924, end: 20210924
  3. ATARAX [Suspect]
     Active Substance: HYDROXYZINE HYDROCHLORIDE
     Dosage: 8 DF, TOTAL
     Route: 048
     Dates: start: 20210924, end: 20210924
  4. PAROXETINE HYDROCHLORIDE [Suspect]
     Active Substance: PAROXETINE HYDROCHLORIDE
     Dosage: 12 DF
     Route: 048
     Dates: start: 20210924, end: 20210924
  5. TRAZODONE HYDROCHLORIDE [Suspect]
     Active Substance: TRAZODONE HYDROCHLORIDE
     Dosage: 10 DF
     Route: 048
     Dates: start: 20210924, end: 20210924
  6. QUETIAPINE FUMARATE [Suspect]
     Active Substance: QUETIAPINE FUMARATE
     Dosage: 250 MG, TOTAL
     Route: 048
     Dates: start: 20210924, end: 20210924
  7. ATARAX [Suspect]
     Active Substance: HYDROXYZINE HYDROCHLORIDE
     Dosage: 8 DF
     Route: 048
     Dates: start: 20210924, end: 20210924
  8. GABAPENTIN [Suspect]
     Active Substance: GABAPENTIN
     Dosage: 1700 MG
     Route: 048
     Dates: start: 20210924, end: 20210924
  9. QUETIAPINE FUMARATE [Suspect]
     Active Substance: QUETIAPINE FUMARATE
     Dosage: 250 MG
     Route: 048
     Dates: start: 20210924, end: 20210924

REACTIONS (5)
  - Overdose [Unknown]
  - Drug abuse [Recovered/Resolved]
  - Bradyphrenia [Unknown]
  - Sopor [Unknown]
  - Suicide attempt [Unknown]

NARRATIVE: CASE EVENT DATE: 20210924
